FAERS Safety Report 12582930 (Version 1)
Quarter: 2016Q3

REPORT INFORMATION
  Report Type: Spontaneous
  Country: NO (occurrence: NO)
  Receive Date: 20160722
  Receipt Date: 20160722
  Transmission Date: 20161109
  Serious: Yes (Death, Hospitalization, Other)
  Sender: FDA-Public Use
  Company Number: NO-PFIZER INC-2016352675

PATIENT
  Age: 64 Year
  Sex: Male

DRUGS (1)
  1. CORDARONE [Suspect]
     Active Substance: AMIODARONE HYDROCHLORIDE
     Indication: VENTRICULAR TACHYCARDIA
     Dosage: UNK (100-200 MG FOR SOME TIME (DOSE INCREASE TO 200 MG DURING HOSPITALIZATION))
     Route: 065
     Dates: end: 20160603

REACTIONS (4)
  - Staphylococcal sepsis [Fatal]
  - Thrombocytopenia [Unknown]
  - Pneumonitis [Fatal]
  - Disseminated intravascular coagulation [Unknown]

NARRATIVE: CASE EVENT DATE: 201605
